FAERS Safety Report 7100959-8 (Version None)
Quarter: 2010Q4

REPORT INFORMATION
  Report Type: 
  Country: None (occurrence: None)
  Receive Date: 20101113
  Receipt Date: 20100402
  Transmission Date: 20110411
  Serious: No
  Sender: FDA-Public Use
  Company Number: US-ALLERGAN-1004386US

PATIENT
  Age: 42 Year
  Sex: Female

DRUGS (7)
  1. BOTOXA? [Suspect]
     Indication: TORTICOLLIS
     Dosage: 100 UNITS, SINGLE
     Route: 030
     Dates: start: 20100305, end: 20100305
  2. TYLENOL [Concomitant]
  3. ALBUTEROL [Concomitant]
  4. CLINDAMYCIN [Concomitant]
  5. XYLOCAINE GEL [Concomitant]
  6. MULTI-VITAMIN [Concomitant]
  7. CAT CLAW HERB [Concomitant]

REACTIONS (2)
  - BREAST CYST [None]
  - SCIATICA [None]
